FAERS Safety Report 11502037 (Version 2)
Quarter: 2015Q3

REPORT INFORMATION
  Report Type: Report from Study
  Country: US (occurrence: US)
  Receive Date: 20150914
  Receipt Date: 20150916
  Transmission Date: 20151125
  Serious: Yes (Death)
  Sender: FDA-Public Use
  Company Number: US-ABBVIE-15P-163-1462683-00

PATIENT
  Age: 62 Year
  Sex: Female

DRUGS (3)
  1. TYLENOL NUMBER 4 [Concomitant]
     Indication: PAIN
  2. FENTANYL. [Concomitant]
     Active Substance: FENTANYL
     Indication: PAIN
  3. HUMIRA [Suspect]
     Active Substance: ADALIMUMAB
     Indication: RHEUMATOID ARTHRITIS
     Route: 058
     Dates: start: 20150728, end: 20150824

REACTIONS (1)
  - Death [Fatal]

NARRATIVE: CASE EVENT DATE: 20150824
